FAERS Safety Report 5432261-4 (Version None)
Quarter: 2007Q3

REPORT INFORMATION
  Report Type: 
  Country: None (occurrence: None)
  Receive Date: 20070830
  Receipt Date: 20070821
  Transmission Date: 20080115
  Serious: Yes (Hospitalization, Other)
  Sender: FDA-Public Use
  Company Number: US-PFIZER INC-2007069900

PATIENT
  Sex: Female

DRUGS (3)
  1. NORVASC [Suspect]
     Dosage: DAILY DOSE:10MG-FREQ:DAILY
  2. ACCUPRIL [Concomitant]
  3. ZOCOR [Concomitant]

REACTIONS (1)
  - UNEVALUABLE EVENT [None]
